FAERS Safety Report 7433465-1 (Version None)
Quarter: 2011Q2

REPORT INFORMATION
  Report Type: 
  Country: None (occurrence: None)
  Receive Date: 20110422
  Receipt Date: 20110418
  Transmission Date: 20111010
  Serious: Yes (Other)
  Sender: FDA-Public Use
  Company Number: GB-ABBOTT-11P-167-0710584-00

PATIENT
  Sex: Female

DRUGS (1)
  1. HUMIRA [Suspect]
     Indication: CROHN'S DISEASE
     Route: 058
     Dates: start: 20090202

REACTIONS (8)
  - ARTHROPATHY [None]
  - JOINT SWELLING [None]
  - ARTHRALGIA [None]
  - LUPUS-LIKE SYNDROME [None]
  - PAIN IN EXTREMITY [None]
  - RASH ERYTHEMATOUS [None]
  - FINGER DEFORMITY [None]
  - SWELLING [None]
